FAERS Safety Report 17699521 (Version 1)
Quarter: 2020Q2

REPORT INFORMATION
  Report Type: Spontaneous
  Country: US (occurrence: US)
  Receive Date: 20200423
  Receipt Date: 20200423
  Transmission Date: 20200714
  Serious: No
  Sender: FDA-Public Use
  Company Number: US-JNJFOC-20200425836

PATIENT
  Age: 43 Year
  Sex: Female
  Weight: 49.94 kg

DRUGS (6)
  1. ADVIL [Concomitant]
     Active Substance: IBUPROFEN
  2. TREMFYA [Suspect]
     Active Substance: GUSELKUMAB
  3. TRAZODONE [Suspect]
     Active Substance: TRAZODONE HYDROCHLORIDE
     Indication: INSOMNIA
     Route: 065
  4. TREMFYA [Suspect]
     Active Substance: GUSELKUMAB
     Indication: PSORIASIS
     Route: 065
  5. TREMFYA [Suspect]
     Active Substance: GUSELKUMAB
  6. ADDERALL [Concomitant]
     Active Substance: AMPHETAMINE ASPARTATE\AMPHETAMINE SULFATE\DEXTROAMPHETAMINE SACCHARATE\DEXTROAMPHETAMINE SULFATE
     Dosage: 10 MG AND 20 MG
     Route: 065

REACTIONS (3)
  - Psoriasis [Unknown]
  - Insomnia [Unknown]
  - Therapy cessation [Unknown]

NARRATIVE: CASE EVENT DATE: 202004
